FAERS Safety Report 16347701 (Version 1)
Quarter: 2019Q2

REPORT INFORMATION
  Report Type: Spontaneous
  Country: FR (occurrence: FR)
  Receive Date: 20190523
  Receipt Date: 20190523
  Transmission Date: 20190711
  Serious: Yes (Hospitalization)
  Sender: FDA-Public Use
  Company Number: FR-MYLANLABS-2019M1047097

PATIENT
  Age: 32 Year
  Sex: Female
  Weight: 111.7 kg

DRUGS (1)
  1. DOXYCYCLINE. [Suspect]
     Active Substance: DOXYCYCLINE
     Indication: HIDRADENITIS
     Dosage: 200 MILLIGRAM, TOTAL
     Route: 048
     Dates: start: 20180618, end: 20180618

REACTIONS (6)
  - Cough [Recovered/Resolved]
  - Laryngeal dyspnoea [Recovered/Resolved]
  - Rash pruritic [Recovered/Resolved]
  - Anaphylactic reaction [Recovered/Resolved]
  - Rash papular [Recovered/Resolved]
  - Dysphonia [Recovered/Resolved]

NARRATIVE: CASE EVENT DATE: 20180619
